FAERS Safety Report 7956778-3 (Version None)
Quarter: 2011Q4

REPORT INFORMATION
  Report Type: 
  Country: None (occurrence: None)
  Receive Date: 20111201
  Receipt Date: 20111115
  Transmission Date: 20120403
  Serious: Yes (Hospitalization)
  Sender: FDA-Public Use
  Company Number: DSJ-2011-08366

PATIENT
  Age: 76 Year
  Sex: Male
  Weight: 65 kg

DRUGS (7)
  1. LOXOPROFEN (LOXOPROFEN) (TABLET) (LOXOPROFEN) [Concomitant]
  2. KETOPROFEN [Concomitant]
  3. CELECOXIB [Concomitant]
  4. FLURBIPROFEN (FLURBIPROFEN) (FLURBIPROFEN) [Concomitant]
  5. NICARDIPINE HYDROCHLORIDE [Suspect]
     Indication: HYPERTENSION
     Dosage: 40 MG (40 MG, 1 IN 1 D), PER ORAL
     Route: 048
     Dates: start: 20080225
  6. ALLOPURINOL [Suspect]
     Indication: HYPERURICAEMIA
     Dosage: 1 DOSAGE FORMS (1 DOSAGE FORMS, 1 IN 1 D), PER ORAL
     Route: 048
     Dates: start: 20090303
  7. OLMESARTAN MEDOXOMIL [Suspect]
     Indication: HYPERTENSION
     Dosage: 20 MG (1 IN 1 D), PER ORAL
     Route: 048
     Dates: start: 20080221

REACTIONS (1)
  - CEREBRAL INFARCTION [None]
